FAERS Safety Report 10177739 (Version 1)
Quarter: 2014Q2

REPORT INFORMATION
  Report Type: Spontaneous
  Country: US (occurrence: US)
  Receive Date: 20140516
  Receipt Date: 20140516
  Transmission Date: 20141212
  Serious: No
  Sender: FDA-Public Use
  Company Number: US-SANOFI-AVENTIS-2013SA046726

PATIENT
  Age: 25 Year
  Sex: Male

DRUGS (3)
  1. APIDRA SOLOSTAR [Suspect]
     Indication: DIABETES MELLITUS
     Dosage: DURATION : ABOUT 1 MONTH DOSE:25 UNIT(S)
     Route: 058
     Dates: start: 2013, end: 2013
  2. SOLOSTAR [Suspect]
     Indication: DEVICE THERAPY
  3. LANTUS SOLOSTAR [Concomitant]
     Dosage: DOSE:22 UNIT(S)
     Dates: start: 2013, end: 2013

REACTIONS (1)
  - Injection site pain [Recovered/Resolved]
